FAERS Safety Report 8616226-7 (Version None)
Quarter: 2012Q3

REPORT INFORMATION
  Report Type: 
  Country: None (occurrence: None)
  Receive Date: 20120823
  Receipt Date: 20120821
  Transmission Date: 20120928
  Serious: Yes (Other)
  Sender: FDA-Public Use
  Company Number: CA-ROCHE-1073514

PATIENT
  Sex: Male

DRUGS (8)
  1. ZOPICLONE [Concomitant]
     Indication: INSOMNIA
     Dosage: 1 TAB HS
  2. EFFEXOR [Concomitant]
     Indication: DEPRESSION
  3. ASCORBIC ACID [Concomitant]
  4. LOVAZA [Concomitant]
     Route: 048
  5. VITAMIN D [Concomitant]
     Route: 048
  6. CALCIUM [Concomitant]
     Route: 048
  7. ZELBORAF [Suspect]
     Indication: METASTATIC MALIGNANT MELANOMA
     Route: 048
     Dates: start: 20120516
  8. OXYCET [Concomitant]
     Indication: PAIN
     Dosage: PM

REACTIONS (4)
  - ARTHRALGIA [None]
  - FATIGUE [None]
  - PRURITUS [None]
  - MASS [None]
